FAERS Safety Report 14426185 (Version 2)
Quarter: 2018Q1

REPORT INFORMATION
  Report Type: Spontaneous
  Country: FI (occurrence: FI)
  Receive Date: 20180123
  Receipt Date: 20180123
  Transmission Date: 20180509
  Serious: Yes (Other)
  Sender: FDA-Public Use
  Company Number: PHHY2018FI003892

PATIENT
  Age: 72 Year
  Sex: Male

DRUGS (8)
  1. PREDNISOLONE. [Suspect]
     Active Substance: PREDNISOLONE
     Indication: ULCERATIVE KERATITIS
     Dosage: 500 MG, UNK
     Route: 042
  2. CYCLOSPORINE. [Concomitant]
     Active Substance: CYCLOSPORINE
     Indication: ULCERATIVE KERATITIS
     Dosage: UNK, Q6H
     Route: 047
  3. PREDNISOLONE. [Suspect]
     Active Substance: PREDNISOLONE
     Dosage: 60 MG, QD
     Route: 048
  4. CICLOSPORIN [Suspect]
     Active Substance: CYCLOSPORINE
     Indication: ULCERATIVE KERATITIS
     Route: 048
  5. PREDNISOLONE. [Suspect]
     Active Substance: PREDNISOLONE
     Dosage: 5 MG, EVERY 4 DAYS
     Route: 048
  6. METHOTREXATE. [Suspect]
     Active Substance: METHOTREXATE
     Indication: ULCERATIVE KERATITIS
     Dosage: 10 MG, QW
     Route: 065
  7. FOLIC ACID. [Concomitant]
     Active Substance: FOLIC ACID
     Indication: ULCERATIVE KERATITIS
     Dosage: 5 MG, QW
     Route: 065
  8. ADCO-OFLOXACIN [Concomitant]
     Indication: ULCERATIVE KERATITIS
     Dosage: UNK, Q6H
     Route: 047

REACTIONS (2)
  - Product use in unapproved indication [Unknown]
  - Hepatitis C [Recovered/Resolved]
